FAERS Safety Report 13690150 (Version 7)
Quarter: 2018Q1

REPORT INFORMATION
  Report Type: Spontaneous
  Country: NO (occurrence: NO)
  Receive Date: 20170626
  Receipt Date: 20180112
  Transmission Date: 20180508
  Serious: Yes (Hospitalization, Other)
  Sender: FDA-Public Use
  Company Number: NO-MYLANLABS-2017M1037137

PATIENT
  Age: 60 Year
  Sex: Male

DRUGS (14)
  1. RISPERIDONE. [Suspect]
     Active Substance: RISPERIDONE
     Indication: PRODUCT USED FOR UNKNOWN INDICATION
     Dosage: FORM:- DEPOT INJECTION, EVERY SECOND WEEK
     Route: 048
  2. MIRTAZAPINE. [Suspect]
     Active Substance: MIRTAZAPINE
     Indication: PRODUCT USED FOR UNKNOWN INDICATION
     Dosage: 15 MG, QD
     Route: 048
  3. BUPRENORPHINE. [Suspect]
     Active Substance: BUPRENORPHINE
     Dosage: 15?G/H
     Route: 060
  4. PARACETAMOL [Suspect]
     Active Substance: ACETAMINOPHEN
     Indication: PRODUCT USED FOR UNKNOWN INDICATION
     Dosage: 4 G, QD
     Route: 048
  5. BIPERIDEN [Suspect]
     Active Substance: BIPERIDEN
     Indication: MUSCLE RIGIDITY
     Dosage: 4 MG, QD
     Route: 065
  6. OXAZEPAM. [Suspect]
     Active Substance: OXAZEPAM
     Indication: MUSCLE RIGIDITY
     Dosage: 15 MG, QD
     Route: 048
  7. IBUPROFEN. [Suspect]
     Active Substance: IBUPROFEN
     Indication: PRODUCT USED FOR UNKNOWN INDICATION
     Dosage: 800 MG, QD
     Route: 048
  8. BUPRENORPHINE. [Suspect]
     Active Substance: BUPRENORPHINE
     Dosage: UNK
     Route: 060
  9. METFORMIN [Suspect]
     Active Substance: METFORMIN HYDROCHLORIDE
     Indication: PRODUCT USED FOR UNKNOWN INDICATION
     Dosage: 1700 MG, UNK
  10. LINAGLIPTIN W/METFORMIN HYDROCHLORIDE [Suspect]
     Active Substance: LINAGLIPTIN\METFORMIN HYDROCHLORIDE
     Indication: PRODUCT USED FOR UNKNOWN INDICATION
     Dosage: 5 MG/1700 MG
     Route: 065
  11. OXAZEPAM. [Suspect]
     Active Substance: OXAZEPAM
     Indication: CONFUSIONAL STATE
     Dosage: THE PATIENT ALSO RECEIVED OXAZEPAM 60-80 MG DAILY
  12. PANTOPRAZOLE [Suspect]
     Active Substance: PANTOPRAZOLE
     Indication: PRODUCT USED FOR UNKNOWN INDICATION
     Dosage: 40 MG, UNK
     Route: 048
  13. BUPRENORPHINE. [Suspect]
     Active Substance: BUPRENORPHINE
     Indication: PRODUCT USED FOR UNKNOWN INDICATION
     Dosage: 15 ?G, EVERY HOUR
     Route: 060
  14. ZOPICLONE [Suspect]
     Active Substance: ZOPICLONE
     Indication: PRODUCT USED FOR UNKNOWN INDICATION
     Dosage: 7.5 MG, QD
     Route: 048

REACTIONS (19)
  - Neuroleptic malignant syndrome [Recovered/Resolved]
  - Hypernatraemia [Recovered/Resolved]
  - Altered state of consciousness [Recovered/Resolved]
  - Confusional state [Recovered/Resolved]
  - Blood creatine phosphokinase increased [Recovered/Resolved]
  - Muscle rigidity [Recovered/Resolved]
  - Hyperhidrosis [Recovered/Resolved]
  - Musculoskeletal stiffness [Recovered/Resolved]
  - Neutrophilia [Recovered/Resolved]
  - Leukocytosis [Recovered/Resolved]
  - Mutism [Recovered/Resolved]
  - Pyrexia [Recovered/Resolved]
  - Dysphagia [Recovered/Resolved]
  - Hypokalaemia [Recovered/Resolved]
  - Metabolic acidosis [Recovered/Resolved]
  - Hypertension [Recovered/Resolved]
  - Transaminases increased [Recovered/Resolved]
  - Diarrhoea [Recovered/Resolved]
  - Tachycardia [Recovered/Resolved]
